FAERS Safety Report 17454714 (Version 1)
Quarter: 2020Q1

REPORT INFORMATION
  Report Type: Spontaneous
  Country: US (occurrence: US)
  Receive Date: 20200224
  Receipt Date: 20200224
  Transmission Date: 20200409
  Serious: Yes (Other)
  Sender: FDA-Public Use
  Company Number: None

PATIENT
  Age: 40 Year
  Sex: Female
  Weight: 67.05 kg

DRUGS (7)
  1. DEXTROAMPHET SACCHARAT, AMPHET ASPARTATE, DEXTROAMPHET SULFATE AND AMPHET SULFAT [Concomitant]
     Active Substance: AMPHETAMINE ASPARTATE\AMPHETAMINE SULFATE\DEXTROAMPHETAMINE SACCHARATE\DEXTROAMPHETAMINE SULFATE
  2. IRON [Concomitant]
     Active Substance: IRON
  3. ATENOLOL. [Concomitant]
     Active Substance: ATENOLOL
  4. BUPROPION. [Concomitant]
     Active Substance: BUPROPION
  5. ESCITALOPRAM [Concomitant]
     Active Substance: ESCITALOPRAM OXALATE
  6. OMEPRAZOLE. [Concomitant]
     Active Substance: OMEPRAZOLE
  7. TOPIRAMATE. [Suspect]
     Active Substance: TOPIRAMATE
     Indication: MIGRAINE
     Dosage: ?          QUANTITY:2 TABLET(S);?
     Route: 048
     Dates: start: 20200128, end: 20200210

REACTIONS (17)
  - Autoscopy [None]
  - Feeling drunk [None]
  - Confusional state [None]
  - Hypoaesthesia [None]
  - Paraesthesia [None]
  - Delusion [None]
  - Feeling abnormal [None]
  - Gait disturbance [None]
  - Hallucination, auditory [None]
  - Suicidal ideation [None]
  - Fall [None]
  - Renal pain [None]
  - Cognitive disorder [None]
  - Morbid thoughts [None]
  - Tooth fracture [None]
  - Loss of personal independence in daily activities [None]
  - Fear [None]

NARRATIVE: CASE EVENT DATE: 20200128
